FAERS Safety Report 17608572 (Version 1)
Quarter: 2020Q2

REPORT INFORMATION
  Report Type: Spontaneous
  Country: BR (occurrence: BR)
  Receive Date: 20200401
  Receipt Date: 20200401
  Transmission Date: 20200713
  Serious: Yes (Other)
  Sender: FDA-Public Use
  Company Number: BR-SA-2020SA078604

PATIENT
  Age: 30 Year
  Sex: Female
  Weight: 63.8 kg

DRUGS (1)
  1. CEREZYME [Suspect]
     Active Substance: IMIGLUCERASE
     Indication: GAUCHER^S DISEASE
     Dosage: 60 U/KG/INFUSION
     Route: 041
     Dates: start: 19941201

REACTIONS (3)
  - Haemorrhage [Unknown]
  - Pregnancy [Unknown]
  - Abortion [Unknown]

NARRATIVE: CASE EVENT DATE: 20200301
